FAERS Safety Report 10433287 (Version 1)
Quarter: 2014Q3

REPORT INFORMATION
  Report Type: Spontaneous
  Country: US (occurrence: None)
  Receive Date: 20140904
  Receipt Date: 20140904
  Transmission Date: 20150326
  Serious: Yes (Hospitalization)
  Sender: FDA-Public Use
  Company Number: None

PATIENT
  Age: 68 Year
  Sex: Female
  Weight: 50.91 kg

DRUGS (1)
  1. PACLITAXEL. [Suspect]
     Active Substance: PACLITAXEL
     Dates: end: 20140801

REACTIONS (9)
  - Stoma site infection [None]
  - Malaise [None]
  - Nausea [None]
  - Fatigue [None]
  - Stoma site erythema [None]
  - Stoma site pain [None]
  - Faeces discoloured [None]
  - Urinary tract infection fungal [None]
  - Gastrointestinal stoma output increased [None]

NARRATIVE: CASE EVENT DATE: 20140802
